FAERS Safety Report 4808026-0 (Version None)
Quarter: 2005Q4

REPORT INFORMATION
  Report Type: 
  Country: None (occurrence: None)
  Receive Date: 20051020
  Receipt Date: 20051011
  Transmission Date: 20060501
  Serious: Yes (Life-Threatening)
  Sender: FDA-Public Use
  Company Number: 2005140841

PATIENT
  Age: 35 Year
  Sex: Female

DRUGS (2)
  1. DOSTINEX [Suspect]
     Indication: ILL-DEFINED DISORDER
     Dosage: 1 MG (0.5 MG, WEEKLY), ORAL
     Route: 048
     Dates: start: 20041101, end: 20050301
  2. LEVONORGESTREL W/ETHINYLESTRADIOL (ETHINYLESTRADIOL, LEVONORGESTREL) [Suspect]
     Indication: ILL-DEFINED DISORDER
     Dosage: (CYCLIC), ORAL
     Route: 048
     Dates: start: 19900101, end: 20050301

REACTIONS (7)
  - BLINDNESS UNILATERAL [None]
  - FACTOR V DEFICIENCY [None]
  - RETINAL ARTERY THROMBOSIS [None]
  - RETINAL HAEMORRHAGE [None]
  - RETINAL ISCHAEMIA [None]
  - RETINAL OEDEMA [None]
  - RETINAL VASCULAR DISORDER [None]
